FAERS Safety Report 10523057 (Version 2)
Quarter: 2014Q4

REPORT INFORMATION
  Report Type: Not Available
  Country: CN (occurrence: CN)
  Receive Date: 20141016
  Receipt Date: 20141016
  Transmission Date: 20150528
  Serious: Yes (Death)
  Sender: FDA-Public Use
  Company Number: CN-MUNDIPHARMA DS AND PHARMACOVIGILANCE-GBR-2014-0021821

PATIENT
  Age: 82 Year
  Sex: Female

DRUGS (1)
  1. MS CONTIN [Suspect]
     Active Substance: MORPHINE SULFATE
     Indication: PAIN
     Dosage: 10 MG, BID
     Route: 048
     Dates: start: 20130911, end: 20131104

REACTIONS (5)
  - Constipation [Recovered/Resolved]
  - Neoplasm malignant [Fatal]
  - Nausea [Recovered/Resolved]
  - Dry mouth [Recovered/Resolved]
  - Somnolence [Unknown]

NARRATIVE: CASE EVENT DATE: 20130913
